FAERS Safety Report 8802997 (Version 1)
Quarter: 2012Q4

REPORT INFORMATION
  Report Type: 
  Country: US (occurrence: US)
  Receive Date: 20120924
  Receipt Date: 20120924
  Transmission Date: 20130627
  Serious: Yes (Hospitalization)
  Sender: FDA-Public Use
  Company Number: US-BAYER-2012-097359

PATIENT
  Age: 33 Year
  Sex: Female
  Weight: 99.77 kg

DRUGS (5)
  1. YASMIN [Suspect]
     Indication: CONTRACEPTION
     Dosage: UNK
     Dates: start: 200510, end: 201107
  2. YAZ [Suspect]
  3. PREDNISONE [Concomitant]
     Dosage: 10 mg, UNK
  4. CEPHALEXIN [Concomitant]
     Dosage: 500 mg, QID
     Route: 048
  5. CLINDAMYCIN [Concomitant]
     Dosage: 300 mg, TID for 5 days
     Route: 048

REACTIONS (2)
  - Pulmonary embolism [None]
  - Deep vein thrombosis [None]
